FAERS Safety Report 5062778-6 (Version None)
Quarter: 2006Q3

REPORT INFORMATION
  Report Type: 
  Country: None (occurrence: None)
  Receive Date: 20060725
  Receipt Date: 20060725
  Transmission Date: 20061208
  Serious: No
  Sender: FDA-Public Use
  Company Number: None

PATIENT
  Age: 48 Year
  Sex: Female

DRUGS (5)
  1. GLYCERIN 72% HOPEWELL PHARMACY + COMPOUNDING CENTER [Suspect]
     Indication: VENOUS INSUFFICIENCY
     Dosage: 1.0 CC
     Dates: start: 20060530
  2. LIDOCAINE HCL 1% AND EPINEPHRINE 1:100,000 BUFFERED WITH 3CC SODIUM BI [Suspect]
     Indication: VARICOSE VEIN
     Dosage: SEE IMAGE
     Dates: start: 20060530
  3. GLYCERIN 72% [Suspect]
  4. LIDOCAINE HCL 1% AND EPINEPHRINE 1:100,000 BUFFERED WITH 3CC SODIUM BI [Suspect]
  5. SODIUM TETRADACYL SULFATE [Concomitant]

REACTIONS (3)
  - PHARMACEUTICAL PRODUCT COMPLAINT [None]
  - POOR QUALITY DRUG ADMINISTERED [None]
  - SKIN REACTION [None]
